FAERS Safety Report 21671593 (Version 1)
Quarter: 2022Q4

REPORT INFORMATION
  Report Type: Report from Study
  Country: US (occurrence: US)
  Receive Date: 20221202
  Receipt Date: 20221202
  Transmission Date: 20230113
  Serious: No
  Sender: FDA-Public Use
  Company Number: US-ABBVIE-4216814

PATIENT
  Sex: Male

DRUGS (1)
  1. LUPRON [Suspect]
     Active Substance: LEUPROLIDE ACETATE
     Indication: Product used for unknown indication
     Route: 065

REACTIONS (6)
  - Fatigue [Unknown]
  - Fall [Recovering/Resolving]
  - Nocturia [Unknown]
  - Contusion [Unknown]
  - Peroneal nerve palsy [Unknown]
  - Papule [Unknown]
